FAERS Safety Report 4717249-0 (Version None)
Quarter: 2005Q3

REPORT INFORMATION
  Report Type: 
  Country: None (occurrence: None)
  Receive Date: 20050719
  Receipt Date: 20050629
  Transmission Date: 20060218
  Serious: Yes (Hospitalization, Other)
  Sender: FDA-Public Use
  Company Number: PHBS2005JP09536

PATIENT
  Age: 50 Year
  Sex: Female

DRUGS (3)
  1. CYCLOSPORINE [Suspect]
     Indication: POLYMYOSITIS
     Dosage: 150 MG/D
     Route: 065
     Dates: start: 20000101
  2. STEROIDS NOS [Suspect]
     Indication: INTERSTITIAL LUNG DISEASE
     Route: 065
  3. METHYLPREDNISOLONE 16MG TAB [Concomitant]
     Dosage: 12 MG/D
     Route: 065

REACTIONS (13)
  - ABDOMINAL DISTENSION [None]
  - ANOREXIA [None]
  - FLATULENCE [None]
  - GASTROINTESTINAL DISORDER [None]
  - GASTROINTESTINAL HYPOMOTILITY [None]
  - GASTROINTESTINAL MOTILITY DISORDER [None]
  - HYPERKERATOSIS [None]
  - NAUSEA [None]
  - OESOPHAGEAL DILATATION [None]
  - OESOPHAGEAL DISORDER [None]
  - PNEUMATOSIS INTESTINALIS [None]
  - SCLERODERMA [None]
  - VOMITING [None]
